FAERS Safety Report 9117963 (Version 1)
Quarter: 2013Q1

REPORT INFORMATION
  Report Type: Spontaneous
  Country: BR (occurrence: BR)
  Receive Date: 20130225
  Receipt Date: 20130225
  Transmission Date: 20140127
  Serious: Yes (Other)
  Sender: FDA-Public Use
  Company Number: PHHY2013BR017487

PATIENT
  Age: 54 None
  Sex: Female
  Weight: 92 kg

DRUGS (4)
  1. SIMVASTATIN [Suspect]
     Indication: BLOOD CHOLESTEROL INCREASED
     Dosage: 1 DF, QD
     Route: 048
  2. VERTIX [Concomitant]
     Indication: LABYRINTHITIS
     Dosage: UNK UKN, UNK
     Route: 048
     Dates: start: 2011
  3. ATENOLOL [Concomitant]
     Indication: ARRHYTHMIA
     Dosage: 0.5 DF, QD
     Route: 048
     Dates: start: 201208
  4. CRESTOR [Concomitant]
     Indication: BLOOD CHOLESTEROL INCREASED
     Dosage: 5 MG, UNK
     Route: 048
     Dates: start: 20130214

REACTIONS (4)
  - Thyroid neoplasm [Not Recovered/Not Resolved]
  - Dizziness [Recovered/Resolved]
  - Headache [Recovered/Resolved]
  - Dyspnoea [Recovered/Resolved]
